FAERS Safety Report 7306647-7 (Version None)
Quarter: 2011Q1

REPORT INFORMATION
  Report Type: 
  Country: None (occurrence: None)
  Receive Date: 20110222
  Receipt Date: 20110210
  Transmission Date: 20110831
  Serious: Yes (Life-Threatening, Other)
  Sender: FDA-Public Use
  Company Number: JP-CELGENEUS-087-21880-10102202

PATIENT
  Sex: Male

DRUGS (4)
  1. REVLIMID [Suspect]
     Route: 048
     Dates: start: 20101102, end: 20101122
  2. REVLIMID [Suspect]
     Route: 048
     Dates: start: 20101130, end: 20101220
  3. REVLIMID [Suspect]
     Route: 048
     Dates: start: 20101001, end: 20101022
  4. ASPIRIN [Concomitant]
     Indication: PROPHYLAXIS
     Route: 048
     Dates: start: 20101002

REACTIONS (11)
  - C-REACTIVE PROTEIN INCREASED [None]
  - HYPERSENSITIVITY [None]
  - NEUTROPHIL COUNT DECREASED [None]
  - PLATELET COUNT DECREASED [None]
  - CONSTIPATION [None]
  - STOMATITIS [None]
  - RENAL FAILURE [None]
  - INFECTION [None]
  - TUMOUR LYSIS SYNDROME [None]
  - ANAEMIA [None]
  - THROMBOCYTOPENIA [None]
